FAERS Safety Report 24126560 (Version 3)
Quarter: 2024Q3

REPORT INFORMATION
  Report Type: Spontaneous
  Country: US (occurrence: US)
  Receive Date: 20240723
  Receipt Date: 20240904
  Transmission Date: 20241017
  Serious: No
  Sender: PFIZER
  Company Number: US-PFIZER INC-202400217163

PATIENT
  Age: 13 Year
  Sex: Male

DRUGS (1)
  1. GENOTROPIN [Suspect]
     Active Substance: SOMATROPIN
     Dosage: 2MG, 7 DAYS A WEEK

REACTIONS (4)
  - Device physical property issue [Unknown]
  - Accidental underdose [Unknown]
  - Device leakage [Unknown]
  - Injection site pain [Unknown]
